FAERS Safety Report 7301648-7 (Version None)
Quarter: 2011Q1

REPORT INFORMATION
  Report Type: 
  Country: None (occurrence: None)
  Receive Date: 20110218
  Receipt Date: 20110204
  Transmission Date: 20110831
  Serious: Yes (Hospitalization)
  Sender: FDA-Public Use
  Company Number: TR-MYLANLABS-2011S1002788

PATIENT
  Age: 63 Year
  Sex: Male

DRUGS (3)
  1. WARFARIN [Suspect]
     Indication: EMBOLISM ARTERIAL
     Route: 065
  2. LEFLUNOMIDE [Interacting]
     Indication: RHEUMATOID ARTHRITIS
     Route: 065
  3. WARFARIN [Interacting]
     Indication: ATRIAL FIBRILLATION
     Route: 065

REACTIONS (5)
  - GASTROINTESTINAL HAEMORRHAGE [None]
  - ABDOMINAL ABSCESS [None]
  - DRUG INTERACTION [None]
  - SYSTEMIC CANDIDA [None]
  - MENINGITIS [None]
